FAERS Safety Report 6820454-0 (Version None)
Quarter: 2010Q3

REPORT INFORMATION
  Report Type: 
  Country: None (occurrence: None)
  Receive Date: 20100707
  Receipt Date: 20100503
  Transmission Date: 20110219
  Serious: Yes (Other)
  Sender: FDA-Public Use
  Company Number: US-B.I. PHARMACEUTICALS,INC./RIDGEFIELD-2010-BP-04796YA

PATIENT
  Age: 3 Year
  Sex: Female

DRUGS (1)
  1. TAMSULOSIN HCL [Suspect]
     Indication: ACCIDENTAL EXPOSURE
     Dosage: 0.2 MG
     Route: 065

REACTIONS (1)
  - HYPOTENSION [None]
